FAERS Safety Report 5719599-8 (Version None)
Quarter: 2008Q2

REPORT INFORMATION
  Report Type: 
  Country: None (occurrence: None)
  Receive Date: 20080423
  Receipt Date: 20070227
  Transmission Date: 20081010
  Serious: Yes (Other)
  Sender: FDA-Public Use
  Company Number: 236615

PATIENT
  Age: 62 Year
  Sex: Female

DRUGS (11)
  1. AVASTIN [Suspect]
     Indication: BREAST CANCER METASTATIC
     Dosage: 10 MG/KG, INTRAVENOUS
     Route: 042
     Dates: start: 20061012
  2. TAXOL [Concomitant]
  3. ARIMIDEX [Concomitant]
  4. VITAMIN B12 [Concomitant]
  5. PAXIL [Concomitant]
  6. AVANDIA [Concomitant]
  7. GLYBURIDE [Concomitant]
  8. VOLTAREN [Concomitant]
  9. METFORMIN HCL [Concomitant]
  10. GLUTAMINE (LEVOGLUTAMIDE) [Concomitant]
  11. PHENAZOPYRIDINE HCL TAB [Concomitant]

REACTIONS (1)
  - HAEMATURIA [None]
